FAERS Safety Report 5267000-3 (Version None)
Quarter: 2007Q1

REPORT INFORMATION
  Report Type: 
  Country: None (occurrence: None)
  Receive Date: 20070316
  Receipt Date: 20070306
  Transmission Date: 20070707
  Serious: Yes (Other)
  Sender: FDA-Public Use
  Company Number: FR-PFIZER INC-2006153642

PATIENT
  Sex: Male
  Weight: 76 kg

DRUGS (7)
  1. LYRICA [Suspect]
     Dates: start: 20060728, end: 20061114
  2. FUROSEMIDE [Concomitant]
  3. PROPRANOLOL [Concomitant]
  4. NEXIUM [Concomitant]
  5. GLICLAZIDE [Concomitant]
  6. BRONCHODUAL [Concomitant]
  7. ZOLPIDEM TARTRATE [Concomitant]

REACTIONS (1)
  - PANCYTOPENIA [None]
